FAERS Safety Report 8474814-5 (Version None)
Quarter: 2012Q2

REPORT INFORMATION
  Report Type: 
  Country: None (occurrence: None)
  Receive Date: 20120622
  Receipt Date: 20120608
  Transmission Date: 20120825
  Serious: No
  Sender: FDA-Public Use
  Company Number: A0977972A

PATIENT
  Age: 29 Year
  Sex: Male
  Weight: 71.2601 kg

DRUGS (1)
  1. RYTHMOL SR [Suspect]
     Indication: INVESTIGATION
     Dosage: 425 MG / SINGLE DOSE / ORAL
     Route: 048
     Dates: start: 20120503, end: 20120503

REACTIONS (3)
  - ELECTROCARDIOGRAM PR PROLONGATION [None]
  - HEART RATE IRREGULAR [None]
  - ATRIOVENTRICULAR BLOCK SECOND DEGREE [None]
